FAERS Safety Report 9800770 (Version 2)
Quarter: 2014Q1

REPORT INFORMATION
  Report Type: Spontaneous
  Country: US (occurrence: US)
  Receive Date: 20140107
  Receipt Date: 20140107
  Transmission Date: 20141002
  Serious: No
  Sender: FDA-Public Use
  Company Number: US-PFIZER INC-2013194683

PATIENT
  Age: 71 Year
  Sex: Female
  Weight: 72.56 kg

DRUGS (7)
  1. LYRICA [Suspect]
     Indication: NEURALGIA
     Dosage: 100 MG, 2X/DAY
     Route: 048
     Dates: start: 2008
  2. SIMVASTATIN [Concomitant]
     Indication: BLOOD CHOLESTEROL INCREASED
     Dosage: UNK
  3. METOPROLOL [Concomitant]
     Indication: HYPERTENSION
     Dosage: UNK
  4. LISINOPRIL [Concomitant]
     Indication: HYPERTENSION
     Dosage: UNK
  5. MELOXICAM [Concomitant]
     Indication: PAIN
     Dosage: UNK
  6. LORTAB [Concomitant]
     Indication: PAIN
     Dosage: UNK, AS NEEDED
  7. DURAGESIC [Concomitant]
     Indication: PAIN
     Dosage: UNK

REACTIONS (2)
  - Dysphonia [Unknown]
  - Weight increased [Unknown]
